FAERS Safety Report 5777557-1 (Version None)
Quarter: 2008Q2

REPORT INFORMATION
  Report Type: 
  Country: None (occurrence: None)
  Receive Date: 20080618
  Receipt Date: 20080610
  Transmission Date: 20081010
  Serious: Yes (Hospitalization)
  Sender: FDA-Public Use
  Company Number: US-ABBOTT-08P-163-0444722-00

PATIENT
  Sex: Male
  Weight: 59.3 kg

DRUGS (6)
  1. HUMIRA [Suspect]
     Indication: COLITIS ULCERATIVE
     Route: 058
     Dates: start: 20080425
  2. HUMIRA [Suspect]
     Route: 058
     Dates: end: 20080318
  3. HUMIRA [Suspect]
     Route: 058
     Dates: start: 20080226
  4. HUMIRA [Suspect]
     Route: 058
     Dates: start: 20070101, end: 20080226
  5. HUMIRA [Suspect]
     Dates: end: 20080425
  6. UNKNOWN [Concomitant]
     Indication: DRUG USE FOR UNKNOWN INDICATION

REACTIONS (4)
  - CLOSTRIDIAL INFECTION [None]
  - DRUG INEFFECTIVE [None]
  - INFLUENZA [None]
  - PANCREATITIS [None]
